FAERS Safety Report 9099207 (Version 1)
Quarter: 2013Q1

REPORT INFORMATION
  Report Type: Spontaneous
  Country: US (occurrence: US)
  Receive Date: 20130213
  Receipt Date: 20130213
  Transmission Date: 20140127
  Serious: Yes (Death, Hospitalization)
  Sender: FDA-Public Use
  Company Number: US-JNJFOC-20130117434

PATIENT
  Age: 78 Year
  Sex: Male
  Weight: 90.72 kg

DRUGS (1)
  1. HALDOL [Suspect]
     Indication: ABNORMAL BEHAVIOUR
     Dosage: 2 MG DAILY
     Route: 048
     Dates: start: 2003

REACTIONS (3)
  - Klebsiella sepsis [Fatal]
  - Pneumonia [Fatal]
  - Normal pressure hydrocephalus [Unknown]
